FAERS Safety Report 5919433-7 (Version None)
Quarter: 2008Q4

REPORT INFORMATION
  Report Type: 
  Country: None (occurrence: None)
  Receive Date: 20081015
  Receipt Date: 20081007
  Transmission Date: 20090506
  Serious: Yes (Hospitalization)
  Sender: FDA-Public Use
  Company Number: PHHO2008US11802

PATIENT
  Sex: Female
  Weight: 82.7 kg

DRUGS (9)
  1. ALISKIREN / HCTZ ALH+TAB [Suspect]
     Indication: HYPERTENSION
     Dosage: DOUBLE BLIND
     Route: 048
     Dates: start: 20080819, end: 20080922
  2. PROTONIX [Concomitant]
     Indication: GASTROOESOPHAGEAL REFLUX DISEASE
     Dosage: UNK
  3. MOBIC [Concomitant]
     Indication: OSTEOARTHRITIS
     Dosage: UNK
  4. KLONOPIN [Concomitant]
     Indication: MUSCLE SPASMS
     Dosage: UNK
  5. ULTRAM [Concomitant]
     Indication: OSTEOARTHRITIS
     Dosage: UNK
  6. TORADOL [Concomitant]
     Indication: PAIN
     Dosage: UNK
     Dates: end: 20080902
  7. FLEXERIL [Concomitant]
     Indication: PAIN
     Dosage: UNK
     Dates: end: 20080907
  8. KENALOG [Concomitant]
     Indication: PAIN
     Dosage: UNK
     Dates: end: 20080902
  9. TOPROL-XL [Concomitant]
     Indication: HYPERTENSION
     Dosage: UNK

REACTIONS (5)
  - CHEST PAIN [None]
  - HYPOKALAEMIA [None]
  - MUSCLE SPASMS [None]
  - MUSCULOSKELETAL CHEST PAIN [None]
  - RHABDOMYOLYSIS [None]
